FAERS Safety Report 19521098 (Version 3)
Quarter: 2021Q3

REPORT INFORMATION
  Report Type: Report from Study
  Country: CA (occurrence: CA)
  Receive Date: 20210712
  Receipt Date: 20210930
  Transmission Date: 20211014
  Serious: Yes (Other)
  Sender: FDA-Public Use
  Company Number: CA-SAMSUNG BIOEPIS-SB-2021-16710

PATIENT
  Age: 40 Year
  Sex: Female

DRUGS (1)
  1. RENFLEXIS [Suspect]
     Active Substance: INFLIXIMAB-ABDA
     Indication: CROHN^S DISEASE
     Dosage: VIAL
     Route: 065
     Dates: start: 20191104

REACTIONS (2)
  - Product use issue [Unknown]
  - Ovarian cancer metastatic [Not Recovered/Not Resolved]
